FAERS Safety Report 5225530-4 (Version None)
Quarter: 2007Q1

REPORT INFORMATION
  Report Type: 
  Country: None (occurrence: None)
  Receive Date: 20070131
  Receipt Date: 20070122
  Transmission Date: 20070707
  Serious: Yes (Other)
  Sender: FDA-Public Use
  Company Number: US-PFIZER INC-2007006232

PATIENT
  Sex: Female
  Weight: 72.6 kg

DRUGS (4)
  1. NORVASC [Suspect]
     Indication: CARDIAC DISORDER
  2. TYLENOL W/ CODEINE [Suspect]
     Indication: PAIN IN EXTREMITY
  3. PLAVIX [Concomitant]
  4. COREG [Concomitant]

REACTIONS (1)
  - HALLUCINATION, VISUAL [None]
